FAERS Safety Report 10522579 (Version 6)
Quarter: 2015Q3

REPORT INFORMATION
  Report Type: Report from Study
  Country: US (occurrence: US)
  Receive Date: 20141016
  Receipt Date: 20150702
  Transmission Date: 20151125
  Serious: Yes (Hospitalization, Other)
  Sender: FDA-Public Use
  Company Number: US-SA-2014SA076824

PATIENT
  Age: 46 Year
  Sex: Male
  Weight: 106.14 kg

DRUGS (10)
  1. AMPYRA [Concomitant]
     Active Substance: DALFAMPRIDINE
     Indication: MULTIPLE SCLEROSIS
  2. AUBAGIO [Suspect]
     Active Substance: TERIFLUNOMIDE
     Indication: RELAPSING-REMITTING MULTIPLE SCLEROSIS
     Route: 048
     Dates: start: 20140206
  3. LYRICA [Concomitant]
     Active Substance: PREGABALIN
     Indication: MULTIPLE SCLEROSIS
  4. GLIPIZIDE. [Concomitant]
     Active Substance: GLIPIZIDE
  5. LIPITOR [Concomitant]
     Active Substance: ATORVASTATIN CALCIUM
     Indication: BLOOD CHOLESTEROL INCREASED
  6. AUBAGIO [Suspect]
     Active Substance: TERIFLUNOMIDE
     Indication: RELAPSING-REMITTING MULTIPLE SCLEROSIS
     Route: 048
     Dates: start: 20140604
  7. NEURONTIN [Concomitant]
     Active Substance: GABAPENTIN
     Indication: MULTIPLE SCLEROSIS
  8. JANUVIA [Concomitant]
     Active Substance: SITAGLIPTIN PHOSPHATE
  9. AUBAGIO [Suspect]
     Active Substance: TERIFLUNOMIDE
     Indication: RELAPSING-REMITTING MULTIPLE SCLEROSIS
     Route: 048
     Dates: start: 20150604
  10. METFORMIN [Concomitant]
     Active Substance: METFORMIN HYDROCHLORIDE
     Indication: DIABETES MELLITUS

REACTIONS (22)
  - Mobility decreased [Unknown]
  - Memory impairment [Unknown]
  - Speech disorder [Unknown]
  - Dysarthria [Not Recovered/Not Resolved]
  - Multiple sclerosis relapse [Unknown]
  - Wheelchair user [Unknown]
  - Rhinorrhoea [Unknown]
  - Balance disorder [Unknown]
  - Gait disturbance [Not Recovered/Not Resolved]
  - Pain [Not Recovered/Not Resolved]
  - Abdominal discomfort [Recovered/Resolved]
  - Fatigue [Unknown]
  - Fall [Recovered/Resolved]
  - Drug dose omission [Unknown]
  - Neuralgia [Unknown]
  - Coordination abnormal [Unknown]
  - Cough [Unknown]
  - Sleep disorder [Unknown]
  - Peroneal nerve palsy [Unknown]
  - Visual impairment [Not Recovered/Not Resolved]
  - Stress [Unknown]
  - Nasopharyngitis [Unknown]

NARRATIVE: CASE EVENT DATE: 201409
